FAERS Safety Report 11449606 (Version 2)
Quarter: 2015Q4

REPORT INFORMATION
  Report Type: Spontaneous
  Country: SE (occurrence: SE)
  Receive Date: 20150903
  Receipt Date: 20151104
  Transmission Date: 20160304
  Serious: Yes (Other)
  Sender: FDA-Public Use
  Company Number: SE-UCBSA-2015027484

PATIENT
  Age: 91 Year
  Sex: Female

DRUGS (8)
  1. KEPPRA [Suspect]
     Active Substance: LEVETIRACETAM
     Dosage: HIGHER DOSE
     Route: 048
     Dates: start: 20150620, end: 20150710
  2. CARBAMAZEPINE. [Suspect]
     Active Substance: CARBAMAZEPINE
     Indication: EPILEPSY
     Dosage: 300 MG, 2X/DAY (BID) (1.5 X 1.5)
     Route: 048
     Dates: start: 20150428, end: 2015
  3. CARBAMAZEPINE. [Suspect]
     Active Substance: CARBAMAZEPINE
     Dosage: DOUBLE DOSE WAS GIVEN OF TEGRETOL AND TEGRETOL R, TOTALLY 600 MG
     Route: 048
     Dates: start: 20150522, end: 2015
  4. CARBAMAZEPINE. [Suspect]
     Active Substance: CARBAMAZEPINE
     Dosage: UNK
     Route: 048
     Dates: start: 20150606, end: 20150619
  5. KEPPRA [Suspect]
     Active Substance: LEVETIRACETAM
     Indication: EPILEPSY
     Dosage: 250 MG, ONCE DAILY (QD)
     Route: 048
     Dates: start: 20150606, end: 20150619
  6. CARBAMAZEPINE. [Suspect]
     Active Substance: CARBAMAZEPINE
     Dosage: HIGHER DOSE
     Route: 048
     Dates: start: 20150620, end: 20150710
  7. TEGRETOL [Concomitant]
     Active Substance: CARBAMAZEPINE
     Dosage: DOUBLE DOSE WAS GIVEN OF TEGRETOL AND TEGRETOL R, TOTALLY 600 MG
     Dates: start: 20150522, end: 2015
  8. TEGRETOL [Concomitant]
     Active Substance: CARBAMAZEPINE
     Indication: PRODUCT USED FOR UNKNOWN INDICATION
     Dosage: UNK

REACTIONS (3)
  - Accidental overdose [Unknown]
  - Weight decreased [Unknown]
  - Depressed level of consciousness [Unknown]

NARRATIVE: CASE EVENT DATE: 2015
